FAERS Safety Report 5133439-X (Version None)
Quarter: 2006Q4

REPORT INFORMATION
  Report Type: 
  Country: None (occurrence: None)
  Receive Date: 20061018
  Receipt Date: 20061003
  Transmission Date: 20070319
  Serious: Yes (Death, Hospitalization)
  Sender: FDA-Public Use
  Company Number: 2006JP003612

PATIENT
  Age: 28 Year
  Sex: Male

DRUGS (5)
  1. PROGRAF [Suspect]
     Indication: BONE MARROW TRANSPLANT
  2. METHOTREXATE [Concomitant]
  3. PREDNISOLONE [Concomitant]
  4. FLUDARABINE PHOSPHATE [Concomitant]
  5. BUSULFAN (BUSULFAN) [Concomitant]

REACTIONS (19)
  - ABDOMINAL PAIN UPPER [None]
  - ANGIOPATHY [None]
  - BK VIRUS INFECTION [None]
  - BRONCHOPULMONARY ASPERGILLOSIS [None]
  - CEREBRAL ASPERGILLOSIS [None]
  - CONVULSION [None]
  - CYSTITIS HAEMORRHAGIC [None]
  - CYTOMEGALOVIRUS ANTIGEN POSITIVE [None]
  - ECCHYMOSIS [None]
  - GASTROINTESTINAL DISORDER [None]
  - HAEMORRHAGE [None]
  - HERPES ZOSTER DISSEMINATED [None]
  - IMMUNE SYSTEM DISORDER [None]
  - LIVER DISORDER [None]
  - LUNG DISORDER [None]
  - PANCREATIC DISORDER [None]
  - POST PROCEDURAL COMPLICATION [None]
  - RENAL DISORDER [None]
  - THROMBOTIC MICROANGIOPATHY [None]
